FAERS Safety Report 16382423 (Version 2)
Quarter: 2019Q2

REPORT INFORMATION
  Report Type: Spontaneous
  Country: US (occurrence: US)
  Receive Date: 20190603
  Receipt Date: 20190619
  Transmission Date: 20190711
  Serious: Yes (Other)
  Sender: FDA-Public Use
  Company Number: US-BRISTOL-MYERS SQUIBB COMPANY-BMS-2019-050439

PATIENT
  Sex: Male

DRUGS (1)
  1. SPRYCEL [Suspect]
     Active Substance: DASATINIB
     Indication: CHRONIC MYELOID LEUKAEMIA
     Dosage: 100 MILLIGRAM, QD
     Route: 048
     Dates: start: 20190208

REACTIONS (7)
  - Myocardial infarction [Unknown]
  - Dyspnoea [Unknown]
  - Pulmonary oedema [Unknown]
  - Eructation [Unknown]
  - Chest pain [Unknown]
  - Cough [Unknown]
  - Nausea [Unknown]
